FAERS Safety Report 8437781-6 (Version None)
Quarter: 2012Q2

REPORT INFORMATION
  Report Type: 
  Country: None (occurrence: None)
  Receive Date: 20120614
  Receipt Date: 20120511
  Transmission Date: 20120825
  Serious: Yes (Other)
  Sender: FDA-Public Use
  Company Number: US-AMGEN-USASP2012030089

PATIENT
  Age: 84 Year
  Sex: Female

DRUGS (3)
  1. PROLIA [Suspect]
     Indication: OSTEOPOROSIS POSTMENOPAUSAL
     Dates: start: 20120328
  2. VITAMIN D [Concomitant]
     Dosage: UNK IU, UNK
  3. CALCIUM [Concomitant]
     Dosage: UNK MG, UNK

REACTIONS (1)
  - BLOOD CALCIUM DECREASED [None]
